FAERS Safety Report 24846029 (Version 2)
Quarter: 2025Q3

REPORT INFORMATION
  Report Type: Spontaneous
  Country: EU (occurrence: EU)
  Receive Date: 20250115
  Receipt Date: 20250802
  Transmission Date: 20251021
  Serious: Yes (Hospitalization, Other)
  Sender: ALEXION PHARMACEUTICALS
  Company Number: EU-ASTRAZENECA-202501GLO011069FR

PATIENT
  Age: 38 Year
  Sex: Male
  Weight: 57 kg

DRUGS (5)
  1. QUETIAPINE FUMARATE [Suspect]
     Active Substance: QUETIAPINE FUMARATE
     Indication: Agitation
     Dates: start: 20241112, end: 20241203
  2. QUETIAPINE FUMARATE [Suspect]
     Active Substance: QUETIAPINE FUMARATE
  3. BACTRIM [Suspect]
     Active Substance: SULFAMETHOXAZOLE\TRIMETHOPRIM
     Indication: Osteitis
     Dates: start: 20241122, end: 20241203
  4. LOXAPINE [Suspect]
     Active Substance: LOXAPINE
     Indication: Agitation
     Dates: start: 20241107, end: 20241203
  5. CEFOTAXIME [Concomitant]
     Active Substance: CEFOTAXIME SODIUM
     Route: 065

REACTIONS (4)
  - Febrile neutropenia [Recovered/Resolved]
  - Leukopenia [Unknown]
  - Febrile bone marrow aplasia [Unknown]
  - Sepsis [Unknown]

NARRATIVE: CASE EVENT DATE: 20241130
